FAERS Safety Report 7340856-6 (Version None)
Quarter: 2011Q1

REPORT INFORMATION
  Report Type: 
  Country: None (occurrence: None)
  Receive Date: 20110309
  Receipt Date: 20110228
  Transmission Date: 20110831
  Serious: Yes (Other)
  Sender: FDA-Public Use
  Company Number: US-TEVA-268861USA

PATIENT
  Sex: Female

DRUGS (2)
  1. LANSOPRAZOLE DELAYED-RELEASE ORALLY DISINTEGRATING TABLETS, 15MG AND 3 [Suspect]
     Indication: GASTROOESOPHAGEAL REFLUX DISEASE
     Route: 048
  2. SODIUM BICARBONATE [Suspect]
     Indication: GASTROOESOPHAGEAL REFLUX DISEASE
     Dosage: TWICE/DAY
     Route: 048
     Dates: start: 20101221, end: 20110105

REACTIONS (4)
  - OFF LABEL USE [None]
  - ASTHMA [None]
  - ABNORMAL BEHAVIOUR [None]
  - VOMITING [None]
